FAERS Safety Report 19527793 (Version 3)
Quarter: 2021Q3

REPORT INFORMATION
  Report Type: Report from Study
  Country: US (occurrence: US)
  Receive Date: 20210713
  Receipt Date: 20210825
  Transmission Date: 20211014
  Serious: Yes (Hospitalization, Other)
  Sender: FDA-Public Use
  Company Number: US-SEATTLE GENETICS-2021SGN02793

PATIENT
  Age: 68 Year
  Sex: Male

DRUGS (5)
  1. TUCATINIB [Suspect]
     Active Substance: TUCATINIB
     Dosage: UNK
  2. CAPECITABINE. [Suspect]
     Active Substance: CAPECITABINE
     Indication: OESOPHAGEAL CARCINOMA
     Route: 065
  3. TUCATINIB [Suspect]
     Active Substance: TUCATINIB
     Dosage: UNK
  4. TUCATINIB [Suspect]
     Active Substance: TUCATINIB
     Indication: OESOPHAGEAL CARCINOMA
     Dosage: UNK
  5. TUCATINIB [Suspect]
     Active Substance: TUCATINIB
     Dosage: UNK

REACTIONS (9)
  - Pneumonia [Unknown]
  - White blood cell count decreased [Unknown]
  - Stomatitis [Unknown]
  - Hypotension [Unknown]
  - Off label use [Unknown]
  - Brain operation [Unknown]
  - Red blood cell count decreased [Unknown]
  - Pyrexia [Unknown]
  - Fatigue [Unknown]

NARRATIVE: CASE EVENT DATE: 20210702
